FAERS Safety Report 10261974 (Version 1)
Quarter: 2014Q2

REPORT INFORMATION
  Report Type: Spontaneous
  Country: US (occurrence: US)
  Receive Date: 20140626
  Receipt Date: 20140626
  Transmission Date: 20141212
  Serious: No
  Sender: FDA-Public Use
  Company Number: US-PFIZER INC-2014174029

PATIENT
  Age: 35 Year
  Sex: Female
  Weight: 77.1 kg

DRUGS (2)
  1. DEPO-PROVERA [Suspect]
     Indication: CONTRACEPTION
     Dosage: 150 MG, UNK
     Route: 030
     Dates: start: 201404
  2. IBUPROFEN [Concomitant]
     Indication: HEADACHE
     Dosage: 600 MG, UNK

REACTIONS (3)
  - Menorrhagia [Unknown]
  - Pain [Unknown]
  - Hormone level abnormal [Unknown]
